FAERS Safety Report 25026010 (Version 2)
Quarter: 2025Q3

REPORT INFORMATION
  Report Type: Spontaneous
  Country: US (occurrence: US)
  Receive Date: 20250301
  Receipt Date: 20250810
  Transmission Date: 20251021
  Serious: No
  Sender: ALEXION PHARMACEUTICALS
  Company Number: US-AstraZeneca-CH-00815564A

PATIENT
  Age: 40 Year
  Sex: Female

DRUGS (1)
  1. TRUQAP [Suspect]
     Active Substance: CAPIVASERTIB
     Route: 065

REACTIONS (3)
  - Hyperglycaemia [Unknown]
  - Rash [Recovered/Resolved]
  - Thirst [Unknown]
